FAERS Safety Report 6298577-7 (Version None)
Quarter: 2009Q3

REPORT INFORMATION
  Report Type: 
  Country: None (occurrence: None)
  Receive Date: 20090803
  Receipt Date: 20090717
  Transmission Date: 20100115
  Serious: Yes (Hospitalization, Other)
  Sender: FDA-Public Use
  Company Number: 2009S1005843

PATIENT
  Age: 72 Year
  Sex: Female

DRUGS (6)
  1. PHOSPHOSODA FLAVOR NOT SPECIFIED [Suspect]
     Indication: COLONOSCOPY
     Dosage: 90 ML; TOTAL; PO
     Route: 048
     Dates: start: 20070903, end: 20070904
  2. LISINOPRIL [Concomitant]
  3. COREG [Concomitant]
  4. ASPIRIN [Concomitant]
  5. VITAMIN B-12 [Concomitant]
  6. IRON [Concomitant]

REACTIONS (2)
  - ANAEMIA [None]
  - RENAL FAILURE [None]
